FAERS Safety Report 10249947 (Version 1)
Quarter: 2014Q2

REPORT INFORMATION
  Report Type: Spontaneous
  Country: US (occurrence: US)
  Receive Date: 20140620
  Receipt Date: 20140620
  Transmission Date: 20141212
  Serious: Yes (Other)
  Sender: FDA-Public Use
  Company Number: US-WATSON-2014-13901

PATIENT
  Age: 8 Month
  Sex: Male
  Weight: 7 kg

DRUGS (2)
  1. TRANEXAMIC ACID (WATSON LABORATORIES) [Suspect]
     Indication: CRANIOSYNOSTOSIS
     Dosage: 10 MG/KG, Q1H
     Route: 042
  2. TRANEXAMIC ACID (WATSON LABORATORIES) [Suspect]
     Dosage: 100 MG/KG, SINGLE, AFTER SURGERY
     Route: 040

REACTIONS (4)
  - Cerebral artery thrombosis [Unknown]
  - Cerebral infarction [Unknown]
  - Encephalomalacia [Unknown]
  - Hypokinesia [Recovering/Resolving]
